FAERS Safety Report 17946322 (Version 6)
Quarter: 2022Q3

REPORT INFORMATION
  Report Type: Spontaneous
  Country: US (occurrence: US)
  Receive Date: 20200625
  Receipt Date: 20220922
  Transmission Date: 20221027
  Serious: Yes (Other)
  Sender: FDA-Public Use
  Company Number: US-PFIZER INC-2020243919

PATIENT
  Age: 44 Year
  Sex: Female

DRUGS (7)
  1. XELJANZ XR [Suspect]
     Active Substance: TOFACITINIB CITRATE
     Indication: Rheumatoid arthritis
     Dosage: 11 MG
  2. OXICONAZOLE NITRATE [Concomitant]
     Active Substance: OXICONAZOLE NITRATE
     Dosage: UNK
  3. MAGNESIUM [Concomitant]
     Active Substance: MAGNESIUM
     Dosage: UNK
  4. CURCUMIN [Concomitant]
     Active Substance: CURCUMIN
     Dosage: UNK
  5. VITAMIN D3 [Concomitant]
     Active Substance: CHOLECALCIFEROL
     Dosage: UNK
  6. VITAMIN C [Concomitant]
     Active Substance: ASCORBIC ACID
     Dosage: UNK
  7. VITAMIN E [Concomitant]
     Active Substance: .ALPHA.-TOCOPHEROL
     Dosage: UNK

REACTIONS (7)
  - Joint injury [Unknown]
  - Vein disorder [Unknown]
  - Drug ineffective [Unknown]
  - Pain [Unknown]
  - Infection [Unknown]
  - COVID-19 [Unknown]
  - Hepatomegaly [Unknown]
